FAERS Safety Report 9192776 (Version 7)
Quarter: 2014Q2

REPORT INFORMATION
  Report Type: Spontaneous
  Country: US (occurrence: US)
  Receive Date: 20130327
  Receipt Date: 20140528
  Transmission Date: 20141212
  Serious: Yes (Life-Threatening, Hospitalization, Congenital Anomaly, Other)
  Sender: FDA-Public Use
  Company Number: US-PFIZER INC-2013094571

PATIENT
  Sex: Male
  Weight: 3.7 kg

DRUGS (3)
  1. ZOLOFT [Suspect]
     Indication: POSTPARTUM DEPRESSION
     Dosage: UNK
     Route: 064
     Dates: start: 199901, end: 200006
  2. PRENATAL VITAMINS [Concomitant]
     Dosage: UNK
     Route: 064
  3. PHENTERMINE [Concomitant]
     Dosage: UNK
     Route: 064

REACTIONS (7)
  - Maternal exposure during pregnancy [Unknown]
  - Transposition of the great vessels [Unknown]
  - Ventricular septal defect [Recovered/Resolved]
  - Patent ductus arteriosus [Unknown]
  - Heart disease congenital [Unknown]
  - Cardiac failure congestive [Recovered/Resolved]
  - Failure to thrive [Recovered/Resolved]
